FAERS Safety Report 7244306-X (Version None)
Quarter: 2011Q1

REPORT INFORMATION
  Report Type: 
  Country: None (occurrence: None)
  Receive Date: 20110118
  Receipt Date: 20110103
  Transmission Date: 20110831
  Serious: Yes (Hospitalization)
  Sender: FDA-Public Use
  Company Number: LTI2011A00004

PATIENT
  Age: 88 Year
  Sex: Male

DRUGS (9)
  1. ISOPTIN [Suspect]
     Dosage: 120 MG (120 MG,1 IN 1 D) ORAL
     Route: 048
     Dates: end: 20101110
  2. ESCITALOPRAM [Concomitant]
  3. MACROGOL (MACROGOL) [Concomitant]
  4. ACETAMINOPHEN [Concomitant]
  5. ZESTRIL [Suspect]
     Dosage: 2.5 MG (2.5 MG, 1 IN 1 D) 1) ORAL
     Route: 048
     Dates: end: 20101110
  6. LANTUS (TNSULIN GLARGINE) [Concomitant]
  7. LANSOPRAZOLE [Suspect]
     Dosage: 15 MG (15 MG, 1 IN 1 D) ORAL
     Route: 048
     Dates: end: 20101110
  8. KARDEGIC (ACETYLSALICYLATE LYSINE) [Suspect]
     Dosage: 150 MG (150 MG,1 IN 1 D) ORAL
     Route: 047
     Dates: start: 20101117
  9. KARDEGIC (ACETYLSALICYLATE LYSINE) [Suspect]
     Dosage: 150 MG (150 MG,1 IN 1 D) ORAL
     Route: 047
     Dates: end: 20101110

REACTIONS (5)
  - FALL [None]
  - NECROSIS [None]
  - THROMBOCYTOPENIC PURPURA [None]
  - LEUKOCYTOCLASTIC VASCULITIS [None]
  - PETECHIAE [None]
